FAERS Safety Report 17222422 (Version 4)
Quarter: 2020Q2

REPORT INFORMATION
  Report Type: Report from Study
  Country: None (occurrence: CA)
  Receive Date: 20200101
  Receipt Date: 20200525
  Transmission Date: 20200713
  Serious: Yes (Other)
  Sender: FDA-Public Use
  Company Number: CA-ABBVIE-19K-028-3212854-00

PATIENT
  Age: 55 Year
  Sex: Female

DRUGS (2)
  1. HUMIRA [Suspect]
     Active Substance: ADALIMUMAB
     Route: 058
     Dates: start: 202001, end: 2020
  2. HUMIRA [Suspect]
     Active Substance: ADALIMUMAB
     Indication: RHEUMATOID ARTHRITIS
     Route: 058
     Dates: start: 20190923

REACTIONS (4)
  - Lymphadenopathy [Not Recovered/Not Resolved]
  - Transfusion-related circulatory overload [Not Recovered/Not Resolved]
  - Ovarian mass [Unknown]
  - Lymphoma [Unknown]

NARRATIVE: CASE EVENT DATE: 20191203
